FAERS Safety Report 9028119 (Version 1)
Quarter: 2013Q1

REPORT INFORMATION
  Report Type: Spontaneous
  Country: US (occurrence: None)
  Receive Date: 20130114
  Receipt Date: 20130114
  Transmission Date: 20140127
  Serious: Yes (Hospitalization)
  Sender: FDA-Public Use
  Company Number: None

PATIENT
  Age: 41 Year
  Sex: Female
  Weight: 54.16 kg

DRUGS (3)
  1. CARBOPLATIN [Suspect]
     Indication: BREAST CANCER
     Dosage: AUC6= 669MG
     Dates: start: 20121227
  2. ERIBULIN [Suspect]
     Indication: BREAST CANCER
     Dosage: 1.4MG/M2 = 2.2MG
     Dates: start: 20121227
  3. ONDANSETRON [Concomitant]

REACTIONS (1)
  - Febrile neutropenia [None]
